APPROVED DRUG PRODUCT: IDAMYCIN
Active Ingredient: IDARUBICIN HYDROCHLORIDE
Strength: 20MG/VIAL
Dosage Form/Route: POWDER;INTRAVENOUS
Application: N050661 | Product #003
Applicant: PFIZER INC
Approved: Apr 25, 1995 | RLD: No | RS: No | Type: DISCN